FAERS Safety Report 8346557-X (Version None)
Quarter: 2012Q2

REPORT INFORMATION
  Report Type: 
  Country: None (occurrence: None)
  Receive Date: 20120509
  Receipt Date: 20120427
  Transmission Date: 20120825
  Serious: Yes (Other)
  Sender: FDA-Public Use
  Company Number: PHHY2012CA014259

PATIENT
  Sex: Female

DRUGS (9)
  1. FOLIC ACID [Concomitant]
  2. DIOVAN [Concomitant]
  3. CLONIDINE [Concomitant]
  4. VITAMIN C [Concomitant]
  5. EXJADE [Suspect]
     Indication: SICKLE CELL ANAEMIA
     Route: 048
  6. FUROSEMIDE [Concomitant]
  7. BLOOD TRANSFUSION, AUXILIARY PRODUCTS [Concomitant]
  8. HYDROXYUREA [Concomitant]
  9. VITAMINS NOS [Concomitant]

REACTIONS (13)
  - PALPITATIONS [None]
  - DYSPNOEA [None]
  - MALAISE [None]
  - NASOPHARYNGITIS [None]
  - DECREASED APPETITE [None]
  - INFLAMMATION [None]
  - OEDEMA PERIPHERAL [None]
  - ABDOMINAL PAIN UPPER [None]
  - HEADACHE [None]
  - BLOOD PRESSURE INCREASED [None]
  - NASAL CONGESTION [None]
  - GENERAL PHYSICAL HEALTH DETERIORATION [None]
  - DYSPEPSIA [None]
